FAERS Safety Report 11847260 (Version 1)
Quarter: 2015Q4

REPORT INFORMATION
  Report Type: Spontaneous
  Country: FR (occurrence: FR)
  Receive Date: 20151217
  Receipt Date: 20151217
  Transmission Date: 20160305
  Serious: Yes (Other)
  Sender: FDA-Public Use
  Company Number: FR-009507513-1512FRA007302

PATIENT
  Age: 25 Year
  Sex: Female
  Weight: 46 kg

DRUGS (1)
  1. NEXPLANON [Suspect]
     Active Substance: ETONOGESTREL
     Indication: CONTRACEPTION
     Dosage: UNK
     Route: 058
     Dates: start: 20131220

REACTIONS (8)
  - Unintended pregnancy [Recovered/Resolved]
  - Medical device complication [Not Recovered/Not Resolved]
  - Amenorrhoea [Not Recovered/Not Resolved]
  - Abortion induced [Unknown]
  - Device embolisation [Unknown]
  - Implant site haemorrhage [Unknown]
  - Pregnancy with implant contraceptive [Recovered/Resolved]
  - Menorrhagia [Recovered/Resolved]

NARRATIVE: CASE EVENT DATE: 201312
